FAERS Safety Report 7690502-7 (Version None)
Quarter: 2011Q3

REPORT INFORMATION
  Report Type: 
  Country: None (occurrence: None)
  Receive Date: 20110818
  Receipt Date: 20110816
  Transmission Date: 20111222
  Serious: Yes (Other)
  Sender: FDA-Public Use
  Company Number: FI-PFIZER INC-2011188801

PATIENT
  Sex: Female

DRUGS (4)
  1. LYRICA [Suspect]
     Dosage: 1+3 CAPSUELS DAILY
  2. LYRICA [Suspect]
     Indication: SPINAL OSTEOARTHRITIS
     Dosage: 1 CAPSULE DAILY
     Dates: start: 20101101
  3. LYRICA [Suspect]
     Dosage: 1+2 CAPSUELS DAILY
  4. LYRICA [Suspect]
     Dosage: 1 CAPSULE TWICE DAILY

REACTIONS (2)
  - DIZZINESS [None]
  - BLOOD PRESSURE INCREASED [None]
